FAERS Safety Report 10677045 (Version 2)
Quarter: 2015Q1

REPORT INFORMATION
  Report Type: Spontaneous
  Country: CZ (occurrence: CZ)
  Receive Date: 20141226
  Receipt Date: 20150107
  Transmission Date: 20150720
  Serious: Yes (Hospitalization)
  Sender: FDA-Public Use
  Company Number: CZ-SA-2014SA173954

PATIENT
  Age: 60 Year
  Sex: Male
  Weight: 68 kg

DRUGS (4)
  1. COMPETACT [Concomitant]
     Active Substance: METFORMIN HYDROCHLORIDE\PIOGLITAZONE HYDROCHLORIDE
  2. GLIMEPIRIDE. [Concomitant]
     Active Substance: GLIMEPIRIDE
     Dosage: STRENGTH: 4 MG TABLET.
  3. INSULIN GLARGINE [Suspect]
     Active Substance: INSULIN GLARGINE
     Indication: TYPE 2 DIABETES MELLITUS
     Route: 065
  4. TENORETIC [Concomitant]
     Active Substance: ATENOLOL\CHLORTHALIDONE

REACTIONS (8)
  - Condition aggravated [Recovered/Resolved]
  - Pancreatitis chronic [Recovered/Resolved]
  - Weight decreased [Recovered/Resolved]
  - Decreased appetite [Recovered/Resolved]
  - Blood glucose increased [Unknown]
  - Abdominal pain [Recovered/Resolved]
  - Asthenia [Recovered/Resolved]
  - Nausea [Recovered/Resolved]

NARRATIVE: CASE EVENT DATE: 20140525
